FAERS Safety Report 19257544 (Version 1)
Quarter: 2021Q2

REPORT INFORMATION
  Report Type: Spontaneous
  Country: US (occurrence: US)
  Receive Date: 20210513
  Receipt Date: 20210513
  Transmission Date: 20210717
  Serious: Yes (Life-Threatening)
  Sender: FDA-Public Use
  Company Number: None

PATIENT
  Age: 12 Year
  Sex: Male
  Weight: 117.8 kg

DRUGS (10)
  1. NIMOLDIPINE [Concomitant]
     Dates: start: 20210421, end: 20210513
  2. VASOPRESSIN. [Concomitant]
     Active Substance: VASOPRESSIN
     Dates: start: 20210427, end: 20210513
  3. NICARDIPINE [Suspect]
     Active Substance: NICARDIPINE
     Indication: CEREBRAL VASOCONSTRICTION
     Dosage: ??          OTHER FREQUENCY:Q8 HOURS;OTHER ROUTE:INTRAVENTRICULAR?
     Dates: start: 20210427, end: 20210428
  4. EPINEPHRINE. [Concomitant]
     Active Substance: EPINEPHRINE
     Dates: start: 20210427, end: 20210503
  5. LEVETIRACETAM. [Concomitant]
     Active Substance: LEVETIRACETAM
     Dates: start: 20210421, end: 20210513
  6. FENTANYL. [Concomitant]
     Active Substance: FENTANYL
     Dates: start: 20210422, end: 20210502
  7. NOREPINEPHRINE. [Concomitant]
     Active Substance: NOREPINEPHRINE
     Dates: start: 20210421, end: 20210513
  8. SENNOSIDES. [Concomitant]
     Active Substance: SENNOSIDES
     Dates: start: 20210421, end: 20210513
  9. VECURONIUM [Concomitant]
     Active Substance: VECURONIUM BROMIDE
     Dates: start: 20210423, end: 20210503
  10. MIDAZOLAM. [Concomitant]
     Active Substance: MIDAZOLAM
     Dates: start: 20210422, end: 20210510

REACTIONS (2)
  - Hypotension [None]
  - Haemodynamic instability [None]

NARRATIVE: CASE EVENT DATE: 20210427
